FAERS Safety Report 8941877 (Version 1)
Quarter: 2012Q4

REPORT INFORMATION
  Report Type: 
  Country: FR (occurrence: FR)
  Receive Date: 20121203
  Receipt Date: 20121203
  Transmission Date: 20130627
  Serious: Yes (Hospitalization)
  Sender: FDA-Public Use
  Company Number: FR-ELI_LILLY_AND_COMPANY-FR201211006699

PATIENT
  Age: 72 Year
  Sex: Male

DRUGS (2)
  1. FORSTEO [Suspect]
     Indication: OSTEOPOROSIS
     Dosage: 20 ug, qd
     Route: 058
     Dates: start: 20121001
  2. FORSTEO [Suspect]
     Dosage: 20 ug, qd
     Route: 058

REACTIONS (2)
  - Vascular graft [Recovered/Resolved]
  - Aortic valve replacement [Recovered/Resolved]
